FAERS Safety Report 23830509 (Version 1)
Quarter: 2024Q2

REPORT INFORMATION
  Report Type: Spontaneous
  Country: US (occurrence: None)
  Receive Date: 20240507
  Receipt Date: 20240507
  Transmission Date: 20240716
  Serious: Yes (Hospitalization)
  Sender: FDA-Public Use
  Company Number: None

PATIENT
  Age: 42 Year
  Sex: Male

DRUGS (2)
  1. APIXABAN [Suspect]
     Active Substance: APIXABAN
     Indication: Atrial fibrillation
     Dosage: FREQUENCY : DAILY;?
     Route: 048
     Dates: start: 20220201
  2. APIXABAN [Suspect]
     Active Substance: APIXABAN
     Indication: Deep vein thrombosis

REACTIONS (7)
  - Pulmonary embolism [None]
  - Tachycardia [None]
  - Leukocytosis [None]
  - Staphylococcal bacteraemia [None]
  - Blood pressure decreased [None]
  - Cellulitis [None]
  - Arthralgia [None]

NARRATIVE: CASE EVENT DATE: 20240411
